FAERS Safety Report 24932153 (Version 1)
Quarter: 2025Q1

REPORT INFORMATION
  Report Type: Report from Study
  Country: US (occurrence: US)
  Receive Date: 20250205
  Receipt Date: 20250205
  Transmission Date: 20250409
  Serious: No
  Sender: EXELIXIS
  Company Number: US-EXELIXIS-CABO-24079793

PATIENT
  Sex: Male

DRUGS (3)
  1. CABOMETYX [Suspect]
     Active Substance: CABOZANTINIB S-MALATE
     Indication: Hepatocellular carcinoma
     Dosage: 60 MG, QD
     Route: 048
     Dates: end: 202407
  2. CABOMETYX [Suspect]
     Active Substance: CABOZANTINIB S-MALATE
     Dosage: 40 MG, QD
     Route: 048
     Dates: start: 202407, end: 20240824
  3. CABOMETYX [Suspect]
     Active Substance: CABOZANTINIB S-MALATE
     Dosage: 20 MG, QD
     Route: 048
     Dates: start: 20241001

REACTIONS (19)
  - Ageusia [Unknown]
  - Gait disturbance [Not Recovered/Not Resolved]
  - Liver function test increased [Unknown]
  - Balance disorder [Recovering/Resolving]
  - Blood pressure increased [Unknown]
  - Dysphonia [Unknown]
  - Pain in extremity [Unknown]
  - Fatigue [Recovering/Resolving]
  - Stomatitis [Recovering/Resolving]
  - Decreased appetite [Recovering/Resolving]
  - Asthenia [Recovering/Resolving]
  - Abdominal pain upper [Unknown]
  - Pain in jaw [Unknown]
  - Ear discomfort [Recovering/Resolving]
  - Weight gain poor [Recovering/Resolving]
  - Oropharyngeal pain [Unknown]
  - Musculoskeletal chest pain [Unknown]
  - Hyponatraemia [Unknown]
  - Product packaging quantity issue [Unknown]
